FAERS Safety Report 14342196 (Version 1)
Quarter: 2018Q1

REPORT INFORMATION
  Report Type: Spontaneous
  Country: US (occurrence: US)
  Receive Date: 20180102
  Receipt Date: 20180102
  Transmission Date: 20180509
  Serious: No
  Sender: FDA-Public Use
  Company Number: US-TEVA-824118ACC

PATIENT
  Age: 80 Year
  Sex: Female

DRUGS (1)
  1. DULOXETINE. [Suspect]
     Active Substance: DULOXETINE
     Indication: NEUROPATHY PERIPHERAL
     Dosage: DELAYED-RELEASE CAPSULE, NIGHT
     Route: 065
     Dates: start: 20171103, end: 20171103

REACTIONS (5)
  - Insomnia [Recovered/Resolved]
  - Cold sweat [Recovered/Resolved]
  - Mydriasis [Recovered/Resolved]
  - Nausea [Recovered/Resolved]
  - Pain in extremity [Recovered/Resolved]

NARRATIVE: CASE EVENT DATE: 20171103
